FAERS Safety Report 8594505-X (Version None)
Quarter: 2012Q3

REPORT INFORMATION
  Report Type: 
  Country: None (occurrence: None)
  Receive Date: 20120725
  Receipt Date: 20120720
  Transmission Date: 20120928
  Serious: Yes (Life-Threatening)
  Sender: FDA-Public Use
  Company Number: 2012032915

PATIENT
  Age: 51 Year
  Sex: Male

DRUGS (1)
  1. HAEMOCOMPLETTAN P (FIBRINOGEN CONCENTRATE (HUMAN)) [Suspect]
     Dosage: INTRAVENOUS (NOT OTHERWISE SPECIFIED)
     Route: 042

REACTIONS (2)
  - CHEST PAIN [None]
  - TRANSFUSION-ASSOCIATED DYSPNOEA [None]
